FAERS Safety Report 5919472-6 (Version None)
Quarter: 2008Q4

REPORT INFORMATION
  Report Type: 
  Country: None (occurrence: None)
  Receive Date: 20081015
  Receipt Date: 20081009
  Transmission Date: 20090506
  Serious: Yes (Hospitalization)
  Sender: FDA-Public Use
  Company Number: CA-WYE-H06316908

PATIENT
  Age: 34 Year
  Sex: Female

DRUGS (7)
  1. PIPERACILLIN AND TAZOBACTAM [Suspect]
     Indication: SEVERE ACUTE RESPIRATORY SYNDROME
  2. ZITHROMAX [Concomitant]
     Indication: SEVERE ACUTE RESPIRATORY SYNDROME
     Route: 042
  3. GUAIFENESIN [Concomitant]
  4. IBUPROFEN TABLETS [Concomitant]
  5. DOPAMINE HCL [Concomitant]
     Route: 041
  6. RIBAVIRIN [Concomitant]
     Indication: SEVERE ACUTE RESPIRATORY SYNDROME
  7. ACETAMINOPHEN [Concomitant]

REACTIONS (3)
  - DISEASE PROGRESSION [None]
  - SEPSIS [None]
  - SEVERE ACUTE RESPIRATORY SYNDROME [None]
